FAERS Safety Report 8548670-0 (Version None)
Quarter: 2012Q3

REPORT INFORMATION
  Report Type: 
  Country: None (occurrence: None)
  Receive Date: 20120717
  Receipt Date: 20120705
  Transmission Date: 20120928
  Serious: Yes (Other)
  Sender: FDA-Public Use
  Company Number: ENTC2012-0305

PATIENT
  Age: 71 Year
  Sex: Female

DRUGS (2)
  1. AKATINOL [Concomitant]
  2. STALEVO 50 [Suspect]
     Indication: PARKINSON'S DISEASE
     Dosage: 50/12.5/200 MG, 2 DF PER DAY ORAL
     Route: 048
     Dates: start: 20110901, end: 20120601

REACTIONS (1)
  - APHAGIA [None]
